FAERS Safety Report 16071268 (Version 5)
Quarter: 2019Q2

REPORT INFORMATION
  Report Type: Spontaneous
  Country: US (occurrence: US)
  Receive Date: 20190314
  Receipt Date: 20190529
  Transmission Date: 20190711
  Serious: No
  Sender: FDA-Public Use
  Company Number: US-PFIZER INC-2019105804

PATIENT
  Age: 66 Year
  Sex: Female
  Weight: 70 kg

DRUGS (2)
  1. IBRANCE [Suspect]
     Active Substance: PALBOCICLIB
     Indication: BREAST CANCER FEMALE
  2. IBRANCE [Suspect]
     Active Substance: PALBOCICLIB
     Indication: BREAST CANCER METASTATIC
     Dosage: 125 MG, CYCLIC [DAYS 1-21 EVERY 28 DAYS]
     Route: 048
     Dates: start: 20190225, end: 20190330

REACTIONS (11)
  - Hot flush [Unknown]
  - Therapeutic response unexpected [Unknown]
  - White blood cell count decreased [Unknown]
  - Fatigue [Not Recovered/Not Resolved]
  - Peripheral swelling [Unknown]
  - Pre-existing condition improved [Unknown]
  - Pain [Recovering/Resolving]
  - Myalgia [Unknown]
  - Dizziness [Unknown]
  - Fall [Unknown]
  - Neck pain [Unknown]

NARRATIVE: CASE EVENT DATE: 2019
